APPROVED DRUG PRODUCT: DYMISTA
Active Ingredient: AZELASTINE HYDROCHLORIDE; FLUTICASONE PROPIONATE
Strength: 0.137MG/SPRAY;0.05MG/SPRAY
Dosage Form/Route: SPRAY, METERED;NASAL
Application: N202236 | Product #001 | TE Code: AB
Applicant: MYLAN SPECIALTY LP
Approved: May 1, 2012 | RLD: Yes | RS: No | Type: RX

PATENTS:
Patent 8168620 | Expires: Feb 24, 2026
Patent 8168620*PED | Expires: Aug 24, 2026